FAERS Safety Report 7226292-1 (Version None)
Quarter: 2011Q1

REPORT INFORMATION
  Report Type: 
  Country: None (occurrence: None)
  Receive Date: 20110114
  Receipt Date: 20110106
  Transmission Date: 20110831
  Serious: Yes (Disabling)
  Sender: FDA-Public Use
  Company Number: PHHY2010FR54974

PATIENT
  Sex: Male
  Weight: 68 kg

DRUGS (2)
  1. GLEEVEC [Suspect]
     Indication: CHRONIC MYELOID LEUKAEMIA
     Dosage: 400 MG, QD
     Dates: start: 20000726
  2. GLEEVEC [Suspect]
     Dosage: 300 MG, UNK
     Dates: end: 20100815

REACTIONS (2)
  - TENDON RUPTURE [None]
  - INJURY [None]
